FAERS Safety Report 23183334 (Version 1)
Quarter: 2023Q4

REPORT INFORMATION
  Report Type: Spontaneous
  Country: US (occurrence: US)
  Receive Date: 20231114
  Receipt Date: 20231114
  Transmission Date: 20240110
  Serious: No
  Sender: FDA-Public Use
  Company Number: US-OptiNose US, Inc-2023OPT000094

PATIENT
  Sex: Female

DRUGS (1)
  1. XHANCE [Suspect]
     Active Substance: FLUTICASONE PROPIONATE
     Indication: Nasal polyps
     Route: 045

REACTIONS (6)
  - Vision blurred [Recovered/Resolved]
  - Fatigue [Recovered/Resolved]
  - Rhinorrhoea [Recovered/Resolved]
  - Throat irritation [Recovered/Resolved]
  - Nasal crusting [Recovered/Resolved]
  - Headache [Recovered/Resolved]
